FAERS Safety Report 12821162 (Version 1)
Quarter: 2016Q4

REPORT INFORMATION
  Report Type: Report from Study
  Country: US (occurrence: US)
  Receive Date: 20161007
  Receipt Date: 20161007
  Transmission Date: 20170207
  Serious: Yes (Other)
  Sender: FDA-Public Use
  Company Number: US-ROCHE-1836691

PATIENT
  Age: 73 Year
  Sex: Female
  Weight: 67.3 kg

DRUGS (20)
  1. BEVACIZUMAB [Suspect]
     Active Substance: BEVACIZUMAB
     Dosage: COURSE:3
     Route: 042
     Dates: start: 20100708
  2. BEVACIZUMAB [Suspect]
     Active Substance: BEVACIZUMAB
     Dosage: COURSE:10
     Route: 042
     Dates: start: 20101227
  3. VELIPARIB [Suspect]
     Active Substance: VELIPARIB
     Dosage: COURSE:5
     Route: 048
     Dates: start: 20100827
  4. VELIPARIB [Suspect]
     Active Substance: VELIPARIB
     Dosage: COURSE:9
     Route: 048
     Dates: start: 20101206
  5. VELIPARIB [Suspect]
     Active Substance: VELIPARIB
     Dosage: COURSE:4
     Route: 048
     Dates: start: 20100805
  6. VELIPARIB [Suspect]
     Active Substance: VELIPARIB
     Dosage: COURSE:6
     Route: 048
     Dates: start: 20100916
  7. VELIPARIB [Suspect]
     Active Substance: VELIPARIB
     Dosage: COURSE:7
     Route: 048
     Dates: start: 20101014
  8. BEVACIZUMAB [Suspect]
     Active Substance: BEVACIZUMAB
     Dosage: COURSE:6
     Route: 042
     Dates: start: 20100916
  9. BEVACIZUMAB [Suspect]
     Active Substance: BEVACIZUMAB
     Dosage: COURSE:9
     Route: 042
     Dates: start: 20101206
  10. VELIPARIB [Suspect]
     Active Substance: VELIPARIB
     Dosage: COURSE:10
     Route: 048
     Dates: start: 20101227
  11. BEVACIZUMAB [Suspect]
     Active Substance: BEVACIZUMAB
     Dosage: COURSE:4
     Route: 042
     Dates: start: 20100805
  12. BEVACIZUMAB [Suspect]
     Active Substance: BEVACIZUMAB
     Dosage: COURSE:7
     Route: 042
     Dates: start: 20101014
  13. VELIPARIB [Suspect]
     Active Substance: VELIPARIB
     Indication: OVARIAN EPITHELIAL CANCER
     Dosage: COURSE:1
     Route: 048
     Dates: start: 20100520
  14. BEVACIZUMAB [Suspect]
     Active Substance: BEVACIZUMAB
     Dosage: COURSE:5
     Route: 042
     Dates: start: 20100827
  15. VELIPARIB [Suspect]
     Active Substance: VELIPARIB
     Dosage: COURSE:2
     Route: 048
     Dates: start: 20100610
  16. VELIPARIB [Suspect]
     Active Substance: VELIPARIB
     Dosage: COURSE:8
     Route: 048
     Dates: start: 20101115
  17. BEVACIZUMAB [Suspect]
     Active Substance: BEVACIZUMAB
     Indication: OVARIAN EPITHELIAL CANCER
     Route: 042
     Dates: start: 20100520
  18. BEVACIZUMAB [Suspect]
     Active Substance: BEVACIZUMAB
     Dosage: COURSE:2
     Route: 042
     Dates: start: 20100610
  19. BEVACIZUMAB [Suspect]
     Active Substance: BEVACIZUMAB
     Dosage: COURSE:8
     Route: 042
     Dates: start: 20101115
  20. VELIPARIB [Suspect]
     Active Substance: VELIPARIB
     Dosage: COURSE:3
     Route: 048
     Dates: start: 20100708

REACTIONS (5)
  - Platelet count decreased [Unknown]
  - Febrile neutropenia [Unknown]
  - Anaemia [Unknown]
  - Neutrophil count decreased [Unknown]
  - White blood cell count decreased [Unknown]
